FAERS Safety Report 12439520 (Version 3)
Quarter: 2016Q2

REPORT INFORMATION
  Report Type: Spontaneous
  Country: JP (occurrence: JP)
  Receive Date: 20160606
  Receipt Date: 20160621
  Transmission Date: 20160815
  Serious: Yes (Other)
  Sender: FDA-Public Use
  Company Number: PHJP2016JP014703

PATIENT
  Age: 75 Year
  Sex: Male

DRUGS (3)
  1. PREDONINE [Suspect]
     Active Substance: PREDNISOLONE\PREDNISOLONE ACETATE\PREDNISOLONE SODIUM SUCCINATE
     Indication: ECZEMA
     Dosage: 10-20MG, UNK
     Route: 048
     Dates: end: 20141001
  2. NEORAL [Suspect]
     Active Substance: CYCLOSPORINE
     Indication: ECZEMA
     Dosage: 150 MG, QD
     Route: 048
     Dates: start: 20141002, end: 20150925
  3. PREDONINE [Suspect]
     Active Substance: PREDNISOLONE\PREDNISOLONE ACETATE\PREDNISOLONE SODIUM SUCCINATE
     Dosage: 20-5 MG, UNK
     Route: 048
     Dates: start: 20151001

REACTIONS (9)
  - Lung infiltration [Unknown]
  - Skin plaque [Unknown]
  - Eosinophilic pneumonia [Recovered/Resolved]
  - Hypereosinophilic syndrome [Recovering/Resolving]
  - Pyrexia [Unknown]
  - Mycosis fungoides [Recovering/Resolving]
  - Lymphocytic infiltration [Unknown]
  - Erythema [Unknown]
  - Product use issue [Unknown]

NARRATIVE: CASE EVENT DATE: 20150925
